FAERS Safety Report 4271769-4 (Version None)
Quarter: 2004Q1

REPORT INFORMATION
  Report Type: 
  Country: None (occurrence: None)
  Receive Date: 20040115
  Receipt Date: 20011211
  Transmission Date: 20041129
  Serious: Yes (Disabling)
  Sender: FDA-Public Use
  Company Number: US-GLAXOSMITHKLINE-A0356405A

PATIENT
  Age: 38 Year
  Sex: Female
  Weight: 61.22 kg

DRUGS (3)
  1. PAXIL [Suspect]
     Indication: DEPRESSION
     Route: 048
     Dates: start: 20001206, end: 20011207
  2. PROVIGIL [Concomitant]
     Indication: HYPERSOMNIA
     Dosage: 100MG TWICE PER DAY
     Route: 048
     Dates: start: 20011119
  3. OVCON-35 [Concomitant]
     Indication: CONTRACEPTION
     Route: 048

REACTIONS (18)
  - ANOREXIA [None]
  - COORDINATION ABNORMAL [None]
  - DISTURBANCE IN ATTENTION [None]
  - DIZZINESS [None]
  - DRUG DEPENDENCE [None]
  - DRUG INEFFECTIVE [None]
  - DRUG WITHDRAWAL SYNDROME [None]
  - DYSSTASIA [None]
  - FOOD CRAVING [None]
  - GAIT DISTURBANCE [None]
  - HYPERSOMNIA [None]
  - IMPAIRED DRIVING ABILITY [None]
  - INSOMNIA [None]
  - LIBIDO DECREASED [None]
  - MEMORY IMPAIRMENT [None]
  - NAUSEA [None]
  - PARAESTHESIA [None]
  - TINNITUS [None]
